FAERS Safety Report 16268120 (Version 2)
Quarter: 2019Q3

REPORT INFORMATION
  Report Type: Report from Study
  Country: US (occurrence: US)
  Receive Date: 20190503
  Receipt Date: 20190816
  Transmission Date: 20191004
  Serious: No
  Sender: FDA-Public Use
  Company Number: US-ALEXION PHARMACEUTICALS INC.-A201906498

PATIENT
  Sex: Female

DRUGS (1)
  1. STRENSIQ [Suspect]
     Active Substance: ASFOTASE ALFA
     Indication: PRODUCT USED FOR UNKNOWN INDICATION
     Route: 065

REACTIONS (8)
  - Vitamin B6 deficiency [Unknown]
  - Nervous system disorder [Unknown]
  - Fall [Unknown]
  - Dizziness [Unknown]
  - Confusional state [Unknown]
  - Drug ineffective [Unknown]
  - Memory impairment [Unknown]
  - Gait disturbance [Unknown]
